FAERS Safety Report 25582036 (Version 1)
Quarter: 2025Q3

REPORT INFORMATION
  Report Type: Spontaneous
  Country: US (occurrence: US)
  Receive Date: 20250719
  Receipt Date: 20250719
  Transmission Date: 20251021
  Serious: Yes (Hospitalization, Other)
  Sender: GLAXOSMITHKLINE
  Company Number: US-GSK-US2025086018

PATIENT
  Sex: Male

DRUGS (1)
  1. TRELEGY ELLIPTA [Suspect]
     Active Substance: FLUTICASONE FUROATE\UMECLIDINIUM BROMIDE\VILANTEROL TRIFENATATE
     Indication: Chronic obstructive pulmonary disease
     Dosage: UNK, QD, 200-62.5 MCG

REACTIONS (5)
  - Dyspnoea [Not Recovered/Not Resolved]
  - Asthenia [Unknown]
  - Dementia [Unknown]
  - Cardiac failure congestive [Unknown]
  - Incorrect dose administered [Unknown]
